FAERS Safety Report 12995428 (Version 1)
Quarter: 2016Q4

REPORT INFORMATION
  Report Type: Spontaneous
  Country: BR (occurrence: BR)
  Receive Date: 20161202
  Receipt Date: 20161202
  Transmission Date: 20170207
  Serious: Yes (Life-Threatening, Hospitalization, Other)
  Sender: FDA-Public Use
  Company Number: BR-APOPHARMA USA, INC.-2016AP015152

PATIENT
  Age: 13 Year
  Sex: Male

DRUGS (6)
  1. CYCLOPHOSPHAMIDE. [Concomitant]
     Active Substance: CYCLOPHOSPHAMIDE
     Indication: STEM CELL TRANSPLANT
     Route: 065
  2. BUSULFAN. [Concomitant]
     Active Substance: BUSULFAN
     Indication: STEM CELL TRANSPLANT
     Route: 065
  3. THYMOGLOBULIN [Concomitant]
     Active Substance: LAPINE T-LYMPHOCYTE IMMUNE GLOBULIN
     Indication: STEM CELL TRANSPLANT
     Route: 065
  4. CYCLOSPORINE. [Concomitant]
     Active Substance: CYCLOSPORINE
     Indication: PROPHYLAXIS AGAINST GRAFT VERSUS HOST DISEASE
     Route: 065
  5. METHOTREXATE. [Concomitant]
     Active Substance: METHOTREXATE
     Indication: PROPHYLAXIS AGAINST GRAFT VERSUS HOST DISEASE
     Route: 065
  6. ALKERAN [Suspect]
     Active Substance: MELPHALAN
     Indication: STEM CELL TRANSPLANT
     Dosage: UNK
     Route: 065

REACTIONS (6)
  - Bronchopulmonary aspergillosis [Recovering/Resolving]
  - Aspergillus infection [Recovering/Resolving]
  - Pericardial effusion [Unknown]
  - Cardiac tamponade [Unknown]
  - Neutropenia [Unknown]
  - Transplant dysfunction [Unknown]
